FAERS Safety Report 16964261 (Version 1)
Quarter: 2019Q4

REPORT INFORMATION
  Report Type: Spontaneous
  Country: US (occurrence: US)
  Receive Date: 20191025
  Receipt Date: 20191025
  Transmission Date: 20200122
  Serious: Yes (Death)
  Sender: FDA-Public Use
  Company Number: None

PATIENT
  Age: 60 Year
  Sex: Female
  Weight: 101.25 kg

DRUGS (22)
  1. DOCUSATE SODIUM. [Concomitant]
     Active Substance: DOCUSATE SODIUM
  2. LOSARTAN. [Concomitant]
     Active Substance: LOSARTAN
  3. OLANZAPINE. [Concomitant]
     Active Substance: OLANZAPINE
  4. LORATIDINE [Concomitant]
     Active Substance: LORATADINE
  5. JANUMET [Concomitant]
     Active Substance: METFORMIN HYDROCHLORIDE\SITAGLIPTIN PHOSPHATE
  6. FLONASE [Concomitant]
     Active Substance: FLUTICASONE PROPIONATE
  7. ASPIRIN. [Concomitant]
     Active Substance: ASPIRIN
  8. METFORMIN [Concomitant]
     Active Substance: METFORMIN HYDROCHLORIDE
  9. TRAZODONE [Concomitant]
     Active Substance: TRAZODONE HYDROCHLORIDE
  10. REGULOID [Concomitant]
     Active Substance: PSYLLIUM HUSK
  11. QUETIAPINE. [Concomitant]
     Active Substance: QUETIAPINE
  12. POTASSIUM CHLORIDE. [Concomitant]
     Active Substance: POTASSIUM CHLORIDE
  13. FUROSEMIDE. [Concomitant]
     Active Substance: FUROSEMIDE
  14. AMMONIUM LACTATE. [Concomitant]
     Active Substance: AMMONIUM LACTATE
  15. IBRANCE [Suspect]
     Active Substance: PALBOCICLIB
     Indication: BREAST CANCER
     Route: 048
     Dates: start: 20190823, end: 20191025
  16. VENTOLIN [Concomitant]
     Active Substance: ALBUTEROL SULFATE
  17. FAMOTIDINE. [Concomitant]
     Active Substance: FAMOTIDINE
  18. ROBAFEN [Concomitant]
     Active Substance: DEXTROMETHORPHAN HYDROBROMIDE\GUAIFENESIN
  19. POLYETHYLENE [Concomitant]
     Active Substance: HIGH DENSITY POLYETHYLENE
  20. CALCIUM [Concomitant]
     Active Substance: CALCIUM
  21. SIMVASTATIN. [Concomitant]
     Active Substance: SIMVASTATIN
  22. OXCARBAZEPINE. [Concomitant]
     Active Substance: OXCARBAZEPINE

REACTIONS (1)
  - Death [None]

NARRATIVE: CASE EVENT DATE: 20191025
